FAERS Safety Report 6180505-6 (Version None)
Quarter: 2009Q2

REPORT INFORMATION
  Report Type: 
  Country: None (occurrence: None)
  Receive Date: 20090504
  Receipt Date: 20090504
  Transmission Date: 20091009
  Serious: Yes (Disabling, Other)
  Sender: FDA-Public Use
  Company Number: None

PATIENT
  Age: 59 Year
  Sex: Female
  Weight: 99.7913 kg

DRUGS (2)
  1. LEVAQUIN [Suspect]
     Indication: UPPER RESPIRATORY TRACT INFECTION
     Dosage: ONE TABLET DAILY FOR 10 DAYS EACH
     Dates: start: 20060105, end: 20060115
  2. LEVAQUIN [Suspect]
     Indication: UPPER RESPIRATORY TRACT INFECTION
     Dates: start: 20060502, end: 20060512

REACTIONS (4)
  - ARTHRITIS [None]
  - MORTON'S NEUROMA [None]
  - PAIN [None]
  - TENDONITIS [None]
